FAERS Safety Report 7644738-1 (Version None)
Quarter: 2011Q3

REPORT INFORMATION
  Report Type: 
  Country: None (occurrence: None)
  Receive Date: 20110729
  Receipt Date: 20110727
  Transmission Date: 20111222
  Serious: Yes (Other)
  Sender: FDA-Public Use
  Company Number: GXKR2011DE00692

PATIENT
  Age: 70 Year
  Sex: Female

DRUGS (4)
  1. METHOTREXATE [Interacting]
     Indication: PSORIATIC ARTHROPATHY
     Dosage: 7.5 MG/ML, UNK
     Dates: start: 20081201
  2. PREDNISOLONE [Suspect]
     Indication: PSORIATIC ARTHROPATHY
     Dosage: 50 MG, UNK
     Route: 048
     Dates: start: 20081201
  3. PREDNISOLONE [Interacting]
     Dosage: 2 MG AND 1.5 IN TURNS
     Route: 048
  4. PREDNISOLONE [Interacting]
     Dosage: GRADUAL DOSE REDUCTION, NOW 2 MG AND 1.5 MG IN TURNS
     Route: 048

REACTIONS (4)
  - IMPAIRED HEALING [None]
  - OSTEOPOROSIS [None]
  - TIBIA FRACTURE [None]
  - FOOT FRACTURE [None]
